FAERS Safety Report 6911407-2 (Version None)
Quarter: 2010Q3

REPORT INFORMATION
  Report Type: 
  Country: None (occurrence: None)
  Receive Date: 20100806
  Receipt Date: 20100728
  Transmission Date: 20110219
  Serious: Yes (Hospitalization)
  Sender: FDA-Public Use
  Company Number: US-JNJFOC-20100708599

PATIENT
  Age: 62 Year
  Sex: Male

DRUGS (9)
  1. NUCYNTA [Suspect]
     Indication: BACK PAIN
     Route: 048
  2. JANUVIA [Concomitant]
     Indication: DIABETES MELLITUS
     Route: 048
  3. GLUCOPHAGE [Concomitant]
     Indication: DIABETES MELLITUS
     Route: 048
  4. SIMVASTATIN [Concomitant]
     Indication: LIPIDS INCREASED
     Route: 048
  5. FLOMAX [Concomitant]
     Route: 048
  6. LEVOTHYROXINE [Concomitant]
     Indication: THYROID HORMONE REPLACEMENT THERAPY
     Route: 048
  7. METOPROLOL [Concomitant]
     Indication: HYPERTENSION
     Route: 048
  8. LISINOPRIL [Concomitant]
     Indication: HYPERTENSION
     Route: 048
  9. ASPIRIN [Concomitant]
     Indication: PROPHYLAXIS
     Route: 048

REACTIONS (5)
  - AGGRESSION [None]
  - CONVULSION [None]
  - DYSARTHRIA [None]
  - DYSKINESIA [None]
  - INCOHERENT [None]
